FAERS Safety Report 10953702 (Version 1)
Quarter: 2015Q1

REPORT INFORMATION
  Report Type: Spontaneous
  Country: GB (occurrence: GB)
  Receive Date: 20150325
  Receipt Date: 20150325
  Transmission Date: 20150721
  Serious: Yes (Other)
  Sender: FDA-Public Use
  Company Number: GB-TEVA-548266ACC

PATIENT
  Age: 46 Year
  Sex: Female

DRUGS (1)
  1. PACLITAXEL. [Suspect]
     Active Substance: PACLITAXEL
     Indication: BREAST CANCER
     Route: 042
     Dates: start: 20150219, end: 20150219

REACTIONS (4)
  - Extravasation blood [Recovering/Resolving]
  - Catheter site warmth [Recovering/Resolving]
  - Catheter site swelling [Recovering/Resolving]
  - Catheter site erythema [Recovering/Resolving]

NARRATIVE: CASE EVENT DATE: 20150219
